FAERS Safety Report 7352269-1 (Version None)
Quarter: 2011Q1

REPORT INFORMATION
  Report Type: 
  Country: None (occurrence: None)
  Receive Date: 20110315
  Receipt Date: 20110304
  Transmission Date: 20110831
  Serious: Yes (Other)
  Sender: FDA-Public Use
  Company Number: BR-BRISTOL-MYERS SQUIBB COMPANY-15594195

PATIENT
  Sex: Female

DRUGS (2)
  1. WARFARIN SODIUM [Concomitant]
     Indication: HYPERTENSION
     Route: 048
     Dates: start: 20090101
  2. APROVEL TABS 150 MG [Suspect]
     Indication: BLOOD PRESSURE MANAGEMENT
     Route: 048
     Dates: start: 20090701

REACTIONS (3)
  - PULMONARY EMBOLISM [None]
  - ASTHMA [None]
  - SMALL INTESTINE CARCINOMA [None]
